FAERS Safety Report 6341100-9 (Version None)
Quarter: 2009Q3

REPORT INFORMATION
  Report Type: 
  Country: None (occurrence: None)
  Receive Date: 20090904
  Receipt Date: 20090824
  Transmission Date: 20100115
  Serious: Yes (Other)
  Sender: FDA-Public Use
  Company Number: B0591277A

PATIENT
  Age: 56 Year
  Sex: Female

DRUGS (2)
  1. ZINACEF [Suspect]
     Indication: SKIN LESION
     Dosage: 750MG THREE TIMES PER DAY
     Route: 030
  2. DALACIN [Suspect]
     Indication: SKIN LESION
     Dosage: 600MG TWICE PER DAY
     Route: 030

REACTIONS (12)
  - ACUTE GENERALISED EXANTHEMATOUS PUSTULOSIS [None]
  - C-REACTIVE PROTEIN INCREASED [None]
  - EOSINOPHILIA [None]
  - LEUKOCYTOSIS [None]
  - NEUTROPHIL COUNT INCREASED [None]
  - PRURITUS [None]
  - PYREXIA [None]
  - RASH ERYTHEMATOUS [None]
  - RASH PUSTULAR [None]
  - SKIN BURNING SENSATION [None]
  - SKIN EXFOLIATION [None]
  - SKIN OEDEMA [None]
